FAERS Safety Report 21296956 (Version 1)
Quarter: 2022Q3

REPORT INFORMATION
  Report Type: Spontaneous
  Country: US (occurrence: None)
  Receive Date: 20220902
  Receipt Date: 20220902
  Transmission Date: 20221027
  Serious: Yes (unspecified)
  Sender: FDA-Public Use
  Company Number: None

PATIENT
  Age: 64 Year
  Sex: Female
  Weight: 174.18 kg

DRUGS (2)
  1. VILAZODONE [Suspect]
     Active Substance: VILAZODONE
     Indication: Depression
     Dosage: FREQUENCY : DAILY;?
     Route: 048
     Dates: start: 20220817, end: 20220827
  2. VILAZODONE [Suspect]
     Active Substance: VILAZODONE
     Indication: Bipolar disorder

REACTIONS (2)
  - Dizziness [None]
  - Vision blurred [None]

NARRATIVE: CASE EVENT DATE: 20220826
